FAERS Safety Report 7141903-7 (Version None)
Quarter: 2010Q4

REPORT INFORMATION
  Report Type: 
  Country: None (occurrence: None)
  Receive Date: 20101112
  Receipt Date: 20100907
  Transmission Date: 20110411
  Serious: No
  Sender: FDA-Public Use
  Company Number: 1000016130

PATIENT
  Age: 55 Year
  Sex: Female

DRUGS (6)
  1. SAVELLA [Suspect]
     Indication: FIBROMYALGIA
     Dosage: 12.5 MG (12.5 MG,1 IN 1 D),ORAL
     Route: 048
     Dates: start: 20100904, end: 20100905
  2. NEXIUM [Concomitant]
  3. LISINOPRIL [Concomitant]
  4. INDERAL [Concomitant]
  5. LOPID [Concomitant]
  6. LASIX [Concomitant]

REACTIONS (5)
  - ABDOMINAL PAIN UPPER [None]
  - FAECES DISCOLOURED [None]
  - SWOLLEN TONGUE [None]
  - VISION BLURRED [None]
  - VOMITING [None]
